FAERS Safety Report 26004748 (Version 1)
Quarter: 2025Q4

REPORT INFORMATION
  Report Type: Spontaneous
  Country: US (occurrence: US)
  Receive Date: 20251106
  Receipt Date: 20251106
  Transmission Date: 20260118
  Serious: No
  Sender: GE HEALTHCARE
  Company Number: US-GE HEALTHCARE-2025CSU014996

PATIENT
  Age: 52 Year
  Sex: Male
  Weight: 141 kg

DRUGS (1)
  1. OMNIPAQUE [Suspect]
     Active Substance: IOHEXOL
     Indication: Computerised tomogram heart
     Dosage: 100 ML, TOTAL
     Route: 042
     Dates: start: 20250808

REACTIONS (1)
  - Nausea [Unknown]

NARRATIVE: CASE EVENT DATE: 20250808
